FAERS Safety Report 7388830-8 (Version None)
Quarter: 2011Q2

REPORT INFORMATION
  Report Type: 
  Country: None (occurrence: None)
  Receive Date: 20110401
  Receipt Date: 20110330
  Transmission Date: 20111010
  Serious: Yes (Hospitalization)
  Sender: FDA-Public Use
  Company Number: CA-ABBOTT-11P-028-0708904-00

PATIENT
  Sex: Male
  Weight: 108.96 kg

DRUGS (11)
  1. GLUCOSAMINE SULPHATE [Concomitant]
     Indication: ARTHRALGIA
     Route: 048
  2. FUROSEMIDE [Concomitant]
     Indication: FLUID RETENTION
     Route: 048
  3. APO-AMOXICLAV [Concomitant]
     Indication: PRODUCT USED FOR UNKNOWN INDICATION
     Route: 048
  4. POTASSIUM CHLORIDE [Concomitant]
     Indication: PRODUCT USED FOR UNKNOWN INDICATION
     Route: 048
  5. EZETIMIBE [Concomitant]
     Indication: BLOOD CHOLESTEROL
     Route: 048
  6. NOVOSEMIDE [Concomitant]
     Indication: DIURETIC THERAPY
     Route: 048
  7. FELODIPINE [Concomitant]
     Indication: BLOOD PRESSURE
     Route: 048
  8. HUMIRA [Suspect]
     Indication: PSORIASIS
     Route: 058
     Dates: start: 20090709
  9. HYDROXYZINE [Concomitant]
     Indication: PRURITUS
     Route: 048
  10. COVERSYL [Concomitant]
     Indication: PRODUCT USED FOR UNKNOWN INDICATION
     Route: 048
  11. ASPIRIN [Concomitant]
     Indication: PAIN
     Route: 048

REACTIONS (5)
  - SKIN BURNING SENSATION [None]
  - SKIN SWELLING [None]
  - PAIN IN EXTREMITY [None]
  - OEDEMA PERIPHERAL [None]
  - STASIS DERMATITIS [None]
